FAERS Safety Report 17174436 (Version 6)
Quarter: 2020Q4

REPORT INFORMATION
  Report Type: Spontaneous
  Country: US (occurrence: US)
  Receive Date: 20191219
  Receipt Date: 20201230
  Transmission Date: 20210113
  Serious: Yes (Other)
  Sender: FDA-Public Use
  Company Number: US-ALEXION PHARMACEUTICALS INC.-A201918560

PATIENT
  Sex: Male

DRUGS (5)
  1. ULTOMIRIS [Suspect]
     Active Substance: RAVULIZUMAB-CWVZ
     Dosage: UNK
     Route: 065
  2. SOLIRIS [Suspect]
     Active Substance: ECULIZUMAB
     Dosage: 900 MG, Q2W
     Route: 065
     Dates: start: 201911
  3. ULTOMIRIS [Suspect]
     Active Substance: RAVULIZUMAB-CWVZ
     Indication: PAROXYSMAL NOCTURNAL HAEMOGLOBINURIA
     Dosage: 3600 MG, UNK
     Route: 042
     Dates: start: 20191008, end: 20191008
  4. SOLIRIS [Suspect]
     Active Substance: ECULIZUMAB
     Dosage: UNK
     Route: 065
  5. SOLIRIS [Suspect]
     Active Substance: ECULIZUMAB
     Indication: PAROXYSMAL NOCTURNAL HAEMOGLOBINURIA
     Dosage: 1200 MG, Q2W
     Route: 065
     Dates: start: 20190408

REACTIONS (16)
  - Malaise [Unknown]
  - Cytopenia [Unknown]
  - Haemolysis [Unknown]
  - Blood lactate dehydrogenase increased [Unknown]
  - Platelet count decreased [Unknown]
  - Platelet count abnormal [Unknown]
  - Blood lactate dehydrogenase abnormal [Unknown]
  - Overweight [Unknown]
  - Vascular device infection [Unknown]
  - Neisseria infection [Unknown]
  - Drug ineffective [Unknown]
  - Reticulocyte count increased [Unknown]
  - Ill-defined disorder [Unknown]
  - Hepatic function abnormal [Unknown]
  - Blood product transfusion dependent [Recovered/Resolved]
  - Fatigue [Unknown]
